FAERS Safety Report 5142954-4 (Version None)
Quarter: 2006Q4

REPORT INFORMATION
  Report Type: 
  Country: None (occurrence: None)
  Receive Date: 20061030
  Receipt Date: 20061004
  Transmission Date: 20070319
  Serious: Yes (Death)
  Sender: FDA-Public Use
  Company Number: MX-JNJFOC-2006090506

PATIENT
  Age: 75 Year
  Sex: Female

DRUGS (3)
  1. EPREX TRIAL STANDARD SUPPORTIVE CARE (EPOETIN ALFA COMPARATOR) INJECTI [Suspect]
     Indication: ANAEMIA OF MALIGNANT DISEASE
  2. DOCETAXEL (DOCETAXEL) [Suspect]
     Indication: BREAST CANCER METASTATIC
     Dosage: 80 MG/M2, 1 IN 21 DAY
     Route: 042
  3. DOXOLEM RU (ALL OTHER THERAPEUTIC PRODUCTS) [Suspect]
     Indication: BREAST CANCER METASTATIC
     Dosage: 60 MG/M2, 1 IN 21 DAY
     Route: 042

REACTIONS (2)
  - REFUSAL OF TREATMENT BY RELATIVE [None]
  - RENAL FAILURE [None]
